FAERS Safety Report 25477468 (Version 2)
Quarter: 2025Q3

REPORT INFORMATION
  Report Type: Report from Study
  Country: US (occurrence: US)
  Receive Date: 20250625
  Receipt Date: 20250803
  Transmission Date: 20251020
  Serious: Yes (Other)
  Sender: ALEXION PHARMACEUTICALS
  Company Number: US-ASTRAZENECA-202506USA020325US

PATIENT
  Age: 76 Year
  Sex: Female
  Weight: 54.104 kg

DRUGS (1)
  1. TRUQAP [Suspect]
     Active Substance: CAPIVASERTIB
     Indication: Benign breast neoplasm
     Dosage: 200 MILLIGRAM, BID
     Dates: start: 20250428, end: 20250428

REACTIONS (2)
  - Dysphagia [Recovered/Resolved]
  - Product dose omission issue [Unknown]

NARRATIVE: CASE EVENT DATE: 20250428
